FAERS Safety Report 7965453-0 (Version None)
Quarter: 2011Q4

REPORT INFORMATION
  Report Type: 
  Country: None (occurrence: None)
  Receive Date: 20111208
  Receipt Date: 20111205
  Transmission Date: 20120403
  Serious: Yes (Other)
  Sender: FDA-Public Use
  Company Number: US-TEVA-261173USA

PATIENT
  Sex: Female

DRUGS (2)
  1. PROPOXYPHENE NAPSYLATE AND ACETAMINOPHEN [Suspect]
     Indication: PAIN
     Dates: start: 20100101, end: 20101101
  2. PROPACET 100 [Suspect]

REACTIONS (6)
  - DYSPNOEA [None]
  - CARDIAC DISORDER [None]
  - PALPITATIONS [None]
  - CARDIAC FLUTTER [None]
  - HEART RATE ABNORMAL [None]
  - ELECTROCARDIOGRAM QT PROLONGED [None]
